FAERS Safety Report 4304568-5 (Version None)
Quarter: 2004Q1

REPORT INFORMATION
  Report Type: 
  Country: None (occurrence: None)
  Receive Date: 20040224
  Receipt Date: 20040218
  Transmission Date: 20041129
  Serious: Yes (Death)
  Sender: FDA-Public Use
  Company Number: CA-JNJFOC-20040204130

PATIENT
  Age: 27 Year
  Sex: Male
  Weight: 100 kg

DRUGS (21)
  1. ITRACONAZOLE [Suspect]
     Indication: BLASTOMYCOSIS
     Dosage: 200 MG, 1 IN 1 DAY, INTRAVENOUS
     Route: 042
     Dates: start: 20040130, end: 20040101
  2. LEVOFLOXACIN [Concomitant]
  3. CEFTAZIDIME SODIUM [Concomitant]
  4. CO-TRIMOZAZOLE (BACTRIM) [Concomitant]
  5. PANTOPRAZOLE (PANTOPRAZOLE) [Concomitant]
  6. DIMENHYDRINATE (DIMENHYDRINATE) [Concomitant]
  7. LACRI-LUB (LACRI-LUBE) [Concomitant]
  8. LORAZEPAM [Concomitant]
  9. NITROGLYCERIN [Concomitant]
  10. OLANZAPINE [Concomitant]
  11. TPN (TPN) [Concomitant]
  12. ABELCET (AMPHOTERICINE B, LIPOSOME) [Concomitant]
  13. TAZOCIN (PIP/TAZO) [Concomitant]
  14. VANCOMYCIN [Concomitant]
  15. COSYNTROPIN (TETRACOSACTIDE) [Concomitant]
  16. FAMOTIDINE [Concomitant]
  17. LASIX [Concomitant]
  18. SOLU-MEDROL [Concomitant]
  19. PREDNISONE [Concomitant]
  20. VERCURONIUM (CURARE ALKALOIDS) [Concomitant]
  21. PANCURONIUM (PANCURONIUM) [Concomitant]

REACTIONS (3)
  - BLOOD BILIRUBIN INCREASED [None]
  - BLOOD UREA INCREASED [None]
  - INFECTION [None]
